FAERS Safety Report 6357728-6 (Version None)
Quarter: 2009Q3

REPORT INFORMATION
  Report Type: 
  Country: None (occurrence: None)
  Receive Date: 20090911
  Receipt Date: 20090828
  Transmission Date: 20100115
  Serious: Yes (Hospitalization)
  Sender: FDA-Public Use
  Company Number: 001679

PATIENT
  Sex: Male
  Weight: 101 kg

DRUGS (14)
  1. NEUPRO [Suspect]
     Indication: PARKINSON'S DISEASE
     Dosage: 2 MG QD TRANSDERMAL, 4 MG QD TRANSDERMAL, 6 MG QD TRANSDERMAL, 8 MG QD TRANSDERMAL
     Route: 062
     Dates: start: 20060615, end: 20060601
  2. NEUPRO [Suspect]
     Indication: PARKINSON'S DISEASE
     Dosage: 2 MG QD TRANSDERMAL, 4 MG QD TRANSDERMAL, 6 MG QD TRANSDERMAL, 8 MG QD TRANSDERMAL
     Route: 062
     Dates: start: 20060607, end: 20060614
  3. NEUPRO [Suspect]
     Indication: PARKINSON'S DISEASE
     Dosage: 2 MG QD TRANSDERMAL, 4 MG QD TRANSDERMAL, 6 MG QD TRANSDERMAL, 8 MG QD TRANSDERMAL
     Route: 062
     Dates: start: 20060601, end: 20060629
  4. NEUPRO [Suspect]
     Indication: PARKINSON'S DISEASE
     Dosage: 2 MG QD TRANSDERMAL, 4 MG QD TRANSDERMAL, 6 MG QD TRANSDERMAL, 8 MG QD TRANSDERMAL
     Route: 062
     Dates: start: 20060630, end: 20061210
  5. REQUIP [Suspect]
     Indication: PARKINSON'S DISEASE
     Dosage: 0.75 MG TID, 2 MG TID, 5 MG TID
     Dates: end: 20061211
  6. REQUIP [Suspect]
     Indication: PARKINSON'S DISEASE
     Dosage: 0.75 MG TID, 2 MG TID, 5 MG TID
     Dates: start: 20061212, end: 20070608
  7. REQUIP [Suspect]
     Indication: PARKINSON'S DISEASE
     Dosage: 0.75 MG TID, 2 MG TID, 5 MG TID
     Dates: start: 20070609
  8. AZILECT [Suspect]
     Indication: PARKINSON'S DISEASE
     Dosage: 1 MG QD
     Dates: end: 20080327
  9. LORZAAR PLUS [Concomitant]
  10. TETRAZEPAM [Concomitant]
  11. DOMPERIDON [Concomitant]
  12. BISOHEXAL [Concomitant]
  13. MAGNESIUM [Concomitant]
  14. CIALIS [Concomitant]

REACTIONS (3)
  - ERECTILE DYSFUNCTION [None]
  - POST PROCEDURAL HAEMATURIA [None]
  - PROSTATE CANCER [None]
